FAERS Safety Report 4912843-6 (Version None)
Quarter: 2006Q1

REPORT INFORMATION
  Report Type: 
  Country: None (occurrence: None)
  Receive Date: 20060210
  Receipt Date: 20060126
  Transmission Date: 20060701
  Serious: Yes (Hospitalization)
  Sender: FDA-Public Use
  Company Number: B0407948A

PATIENT
  Age: 49 Year
  Sex: Male

DRUGS (4)
  1. LEXIVA TABLET (FOSAMPRENAVIR) [Suspect]
     Indication: HIV INFECTION
     Dosage: ORAL
     Route: 048
     Dates: start: 20050421, end: 20050423
  2. DIDANOSINE [Suspect]
     Indication: HIV INFECTION
     Dosage: ORAL
     Route: 048
     Dates: start: 20050421, end: 20050423
  3. KALETRA [Concomitant]
  4. TENOFOVIR DISOPROXIL FUMA [Concomitant]

REACTIONS (3)
  - ASTHENIA [None]
  - MYALGIA [None]
  - RASH GENERALISED [None]
